FAERS Safety Report 10591065 (Version 2)
Quarter: 2014Q4

REPORT INFORMATION
  Report Type: Spontaneous
  Country: JP (occurrence: JP)
  Receive Date: 20141118
  Receipt Date: 20141118
  Transmission Date: 20150529
  Serious: Yes (Hospitalization)
  Sender: FDA-Public Use
  Company Number: JP-BAYER-2014-158220

PATIENT
  Age: 68 Year
  Sex: Female
  Weight: 38 kg

DRUGS (11)
  1. FEBUXOSTAT. [Concomitant]
     Active Substance: FEBUXOSTAT
     Indication: HYPERURICAEMIA
     Dosage: DAILY DOSE 10 MG
     Route: 048
     Dates: start: 20130613
  2. XARELTO [Suspect]
     Active Substance: RIVAROXABAN
     Indication: THROMBOSIS PROPHYLAXIS
     Dosage: DAILY DOSE 15 MG
     Route: 048
     Dates: start: 20140423, end: 20140603
  3. DIART [Concomitant]
     Active Substance: AZOSEMIDE
     Indication: CARDIAC FAILURE ACUTE
     Dosage: DAILY DOSE 60 MG
     Route: 048
     Dates: start: 20130613
  4. ARTIST [Concomitant]
     Active Substance: CARVEDILOL
     Indication: HYPERTENSION
     Dosage: DAILY DOSE 10 MG
     Route: 048
     Dates: start: 20130613
  5. BAYASPIRIN [Suspect]
     Active Substance: ASPIRIN
     Indication: CORONARY ANGIOPLASTY
     Dosage: DAILY DOSE 100 MG
     Route: 048
     Dates: start: 20130925, end: 20140603
  6. LIPITOR [Concomitant]
     Active Substance: ATORVASTATIN CALCIUM
     Indication: DYSLIPIDAEMIA
     Dosage: DAILY DOSE 10 MG
     Route: 048
     Dates: start: 20130613
  7. ARTIST [Concomitant]
     Active Substance: CARVEDILOL
     Indication: CARDIAC FAILURE ACUTE
  8. PLAVIX [Suspect]
     Active Substance: CLOPIDOGREL BISULFATE
     Indication: CORONARY ANGIOPLASTY
     Dosage: DAILY DOSE 75 MG
     Route: 048
     Dates: start: 20130925, end: 20140603
  9. PLAVIX [Suspect]
     Active Substance: CLOPIDOGREL BISULFATE
     Indication: CORONARY ANGIOPLASTY
     Dosage: 75 MG, UNK
     Route: 048
     Dates: start: 20140607
  10. NEXIUM [Concomitant]
     Active Substance: ESOMEPRAZOLE MAGNESIUM
     Indication: PROPHYLAXIS AGAINST GASTROINTESTINAL ULCER
     Dosage: DAILY DOSE 20 MG
     Route: 048
     Dates: start: 20130613
  11. SPIRONOLACTONE. [Concomitant]
     Active Substance: SPIRONOLACTONE
     Indication: CARDIAC FAILURE ACUTE
     Dosage: DAILY DOSE 50 MG
     Route: 048
     Dates: start: 20130613

REACTIONS (1)
  - Vascular pseudoaneurysm [Recovered/Resolved]

NARRATIVE: CASE EVENT DATE: 201405
